FAERS Safety Report 15734498 (Version 1)
Quarter: 2018Q4

REPORT INFORMATION
  Report Type: Spontaneous
  Country: US (occurrence: US)
  Receive Date: 20181203
  Receipt Date: 20181203
  Transmission Date: 20190205
  Serious: Yes (Hospitalization)
  Sender: FDA-Public Use
  Company Number: None

PATIENT
  Age: 29 Year
  Sex: Male
  Weight: 90 kg

DRUGS (3)
  1. SERTRALINE HCI [Concomitant]
  2. MUCINEX [Suspect]
     Active Substance: GUAIFENESIN
     Indication: DISCOMFORT
     Dosage: ?          QUANTITY:1 TABLET(S);?
     Route: 048
     Dates: start: 20181126, end: 20181127
  3. MUCINEX [Suspect]
     Active Substance: GUAIFENESIN
     Indication: SECRETION DISCHARGE
     Dosage: ?          QUANTITY:1 TABLET(S);?
     Route: 048
     Dates: start: 20181126, end: 20181127

REACTIONS (2)
  - Lip swelling [None]
  - Reaction to excipient [None]

NARRATIVE: CASE EVENT DATE: 20181127
